FAERS Safety Report 6842684-4 (Version None)
Quarter: 2010Q3

REPORT INFORMATION
  Report Type: 
  Country: None (occurrence: None)
  Receive Date: 20100714
  Receipt Date: 20070801
  Transmission Date: 20110219
  Serious: No
  Sender: FDA-Public Use
  Company Number: US-PFIZER INC-2007065405

PATIENT
  Sex: Female
  Weight: 54.4 kg

DRUGS (1)
  1. CHANTIX [Suspect]
     Indication: SMOKING CESSATION THERAPY
     Dates: start: 20070731

REACTIONS (8)
  - BLOOD PRESSURE DECREASED [None]
  - DIZZINESS [None]
  - FATIGUE [None]
  - FEELING HOT [None]
  - HYPERHIDROSIS [None]
  - NAUSEA [None]
  - PRESYNCOPE [None]
  - RESTLESSNESS [None]
